FAERS Safety Report 4788433-5 (Version None)
Quarter: 2005Q3

REPORT INFORMATION
  Report Type: 
  Country: None (occurrence: None)
  Receive Date: 20050920
  Receipt Date: 20050811
  Transmission Date: 20060218
  Serious: No
  Sender: FDA-Public Use
  Company Number: 0205026

PATIENT
  Age: 85 Year
  Sex: Male

DRUGS (1)
  1. DEPODUR [Suspect]
     Indication: POSTOPERATIVE ANALGESIA
     Dosage: 12 MG (ONCE) EPIDURAL
     Route: 008
     Dates: start: 20050801, end: 20050801

REACTIONS (3)
  - BLOOD PRESSURE DECREASED [None]
  - CARDIAC ARREST [None]
  - OXYGEN SATURATION DECREASED [None]
